FAERS Safety Report 17181098 (Version 4)
Quarter: 2020Q2

REPORT INFORMATION
  Report Type: Spontaneous
  Country: CA (occurrence: CA)
  Receive Date: 20191220
  Receipt Date: 20200402
  Transmission Date: 20200713
  Serious: Yes (Other)
  Sender: FDA-Public Use
  Company Number: CA-ROCHE-2500261

PATIENT
  Age: 32 Year
  Sex: Female

DRUGS (6)
  1. XOLAIR [Suspect]
     Active Substance: OMALIZUMAB
     Indication: ASTHMA
     Route: 058
     Dates: start: 20191028
  2. REACTINE [CETIRIZINE HYDROCHLORIDE] [Concomitant]
     Active Substance: CETIRIZINE HYDROCHLORIDE
     Indication: ASTHMA
     Route: 048
     Dates: start: 2015
  3. SYMBICORT [Concomitant]
     Active Substance: BUDESONIDE\FORMOTEROL FUMARATE DIHYDRATE
     Indication: ASTHMA
     Route: 055
     Dates: start: 2009
  4. PULMICORT TURBUHALER [Concomitant]
     Active Substance: BUDESONIDE
     Indication: ASTHMA
     Route: 045
  5. XOLAIR [Suspect]
     Active Substance: OMALIZUMAB
     Dosage: 225 MG, BIW
     Route: 058
     Dates: start: 20191210
  6. VENTOLIN [Concomitant]
     Active Substance: ALBUTEROL SULFATE
     Indication: ASTHMA
     Route: 055
     Dates: start: 2014

REACTIONS (4)
  - Nausea [Unknown]
  - Headache [Unknown]
  - Syringe issue [Unknown]
  - Angina pectoris [Unknown]

NARRATIVE: CASE EVENT DATE: 20191210
